FAERS Safety Report 15074763 (Version 1)
Quarter: 2018Q2

REPORT INFORMATION
  Report Type: Spontaneous
  Country: US (occurrence: US)
  Receive Date: 20180627
  Receipt Date: 20180627
  Transmission Date: 20180711
  Serious: No
  Sender: FDA-Public Use
  Company Number: US-SAOL THERAPEUTICS-2017SAO01276

PATIENT
  Sex: Female

DRUGS (2)
  1. DEMEROL [Suspect]
     Active Substance: MEPERIDINE HYDROCHLORIDE
     Dosage: UNK
     Route: 037
  2. BACLOFEN. [Suspect]
     Active Substance: BACLOFEN
     Indication: SPINAL PAIN
     Dosage: UNK
     Route: 037

REACTIONS (3)
  - Pain [Unknown]
  - Off label use [Unknown]
  - Device infusion issue [Not Recovered/Not Resolved]

NARRATIVE: CASE EVENT DATE: 2016
